FAERS Safety Report 7846658-6 (Version None)
Quarter: 2011Q4

REPORT INFORMATION
  Report Type: 
  Country: None (occurrence: None)
  Receive Date: 20111025
  Receipt Date: 20111014
  Transmission Date: 20120403
  Serious: Yes (Other)
  Sender: FDA-Public Use
  Company Number: PHFR2011IE05910

PATIENT
  Sex: Male

DRUGS (1)
  1. CLOZARIL [Suspect]
     Indication: SCHIZOPHRENIA
     Dosage: 225 MG, QD
     Route: 048
     Dates: start: 20110722

REACTIONS (4)
  - ORTHOSTATIC HYPOTENSION [None]
  - DIZZINESS [None]
  - EPISTAXIS [None]
  - BLOOD ALKALINE PHOSPHATASE INCREASED [None]
